FAERS Safety Report 18460711 (Version 1)
Quarter: 2020Q4

REPORT INFORMATION
  Report Type: Spontaneous
  Country: US (occurrence: US)
  Receive Date: 20201104
  Receipt Date: 20201104
  Transmission Date: 20210114
  Serious: No
  Sender: FDA-Public Use
  Company Number: US-SA-2020SA308597

PATIENT

DRUGS (1)
  1. SELSUN BLUE [Suspect]
     Active Substance: SELENIUM SULFIDE
     Dosage: UNK
     Route: 048

REACTIONS (1)
  - Product use issue [Unknown]
